FAERS Safety Report 25904130 (Version 1)
Quarter: 2025Q4

REPORT INFORMATION
  Report Type: Spontaneous
  Country: EU (occurrence: EU)
  Receive Date: 20251010
  Receipt Date: 20251010
  Transmission Date: 20260117
  Serious: Yes (Other)
  Sender: AUROBINDO
  Company Number: EU-AFSSAPS-GR2025001487

PATIENT
  Age: 19 Year
  Sex: Female
  Weight: 36 kg

DRUGS (1)
  1. DULOXETINE [Suspect]
     Active Substance: DULOXETINE
     Indication: Anorexia nervosa
     Dosage: 90 MILLIGRAM, ONCE A DAY
     Route: 048
     Dates: start: 20250630, end: 20250820

REACTIONS (1)
  - Hepatic cytolysis [Recovered/Resolved]

NARRATIVE: CASE EVENT DATE: 20250724
